FAERS Safety Report 19151895 (Version 2)
Quarter: 2021Q2

REPORT INFORMATION
  Report Type: Spontaneous
  Country: US (occurrence: US)
  Receive Date: 20210419
  Receipt Date: 20210514
  Transmission Date: 20210717
  Serious: No
  Sender: FDA-Public Use
  Company Number: US-ASTRAZENECA-2021A267069

PATIENT
  Sex: Male
  Weight: 108.9 kg

DRUGS (2)
  1. INVOKA MET XR [Concomitant]
     Indication: TYPE 2 DIABETES MELLITUS
  2. BYDUREON BCISE [Suspect]
     Active Substance: EXENATIDE
     Indication: TYPE 2 DIABETES MELLITUS
     Route: 065

REACTIONS (3)
  - Injection site mass [Unknown]
  - Product use issue [Unknown]
  - Device delivery system issue [Unknown]
